FAERS Safety Report 6048250-5 (Version None)
Quarter: 2009Q1

REPORT INFORMATION
  Report Type: 
  Country: None (occurrence: None)
  Receive Date: 20090123
  Receipt Date: 20090120
  Transmission Date: 20090719
  Serious: Yes (Life-Threatening)
  Sender: FDA-Public Use
  Company Number: JP-BRISTOL-MYERS SQUIBB COMPANY-14477129

PATIENT
  Age: 48 Year
  Sex: Female

DRUGS (5)
  1. TRAZODONE HCL [Suspect]
     Indication: DEPRESSION
     Dosage: (100MG)05-JAN-2003 TO 12-DEC-2008;(50MG)FROM 13-DEC-2008 AND ONGOING
     Route: 048
     Dates: start: 20030105
  2. LUVOX [Suspect]
     Indication: DEPRESSION
     Dosage: 50MG:10-NOV-2008 TO 12-DEC-2008. 25MG:13-DEC-2008 AND ONGOING
     Route: 048
     Dates: start: 20081110
  3. PAXIL [Suspect]
     Indication: DEPRESSION
     Dosage: 20MG:08DEC-2008 TO 12-DEC-2008. 10MG:13-DEC-2008 AND WAS ONGOING.
     Route: 048
     Dates: start: 20081208
  4. SILECE [Concomitant]
     Dates: start: 20081101
  5. DEPAS [Concomitant]
     Dates: start: 20081101

REACTIONS (2)
  - GAIT DISTURBANCE [None]
  - PARKINSONIAN CRISIS [None]
